FAERS Safety Report 11792415 (Version 2)
Quarter: 2016Q2

REPORT INFORMATION
  Report Type: Report from Study
  Country: AU (occurrence: AU)
  Receive Date: 20151202
  Receipt Date: 20160408
  Transmission Date: 20160815
  Serious: Yes (Other)
  Sender: FDA-Public Use
  Company Number: AU-UCBSA-2015037619

PATIENT
  Age: 53 Year
  Sex: Female

DRUGS (2)
  1. CERTOLIZUMAB PEGOL [Suspect]
     Active Substance: CERTOLIZUMAB PEGOL
     Indication: PSORIATIC ARTHROPATHY
     Dosage: 400 MG, EV 2 WEEKS(QOW)
     Route: 058
     Dates: start: 20151002, end: 20151030
  2. CERTOLIZUMAB PEGOL [Suspect]
     Active Substance: CERTOLIZUMAB PEGOL
     Dosage: 200 MG, (RECEIVED SINGLE DOSE)
     Route: 058
     Dates: start: 20151113, end: 20151113

REACTIONS (1)
  - Pustular psoriasis [Recovering/Resolving]

NARRATIVE: CASE EVENT DATE: 20151115
